FAERS Safety Report 17411097 (Version 1)
Quarter: 2020Q1

REPORT INFORMATION
  Report Type: Spontaneous
  Country: RU (occurrence: RU)
  Receive Date: 20200212
  Receipt Date: 20200212
  Transmission Date: 20200409
  Serious: Yes (Hospitalization)
  Sender: FDA-Public Use
  Company Number: RU-B.BRAUN MEDICAL INC.-2080249

PATIENT
  Age: 40 Year
  Sex: Female
  Weight: 80 kg

DRUGS (4)
  1. DROTAVERINE [Concomitant]
     Active Substance: DROTAVERINE
     Dates: start: 20191228, end: 20191230
  2. SODIUM CHLORIDE INJECTION USP 0264-7800-09 [Suspect]
     Active Substance: SODIUM CHLORIDE
     Indication: PANCREATITIS
     Route: 041
     Dates: start: 20191228, end: 20191229
  3. PLATYPHYLLINE [Concomitant]
     Route: 030
     Dates: start: 20191228, end: 20191230
  4. MAGNESIUM SULFATE. [Suspect]
     Active Substance: MAGNESIUM SULFATE
     Route: 042
     Dates: start: 20191228, end: 20191229

REACTIONS (1)
  - Angioedema [Recovered/Resolved]

NARRATIVE: CASE EVENT DATE: 20191228
